FAERS Safety Report 19609528 (Version 1)
Quarter: 2021Q3

REPORT INFORMATION
  Report Type: Spontaneous
  Country: CN (occurrence: CN)
  Receive Date: 20210726
  Receipt Date: 20210726
  Transmission Date: 20211014
  Serious: Yes (Other)
  Sender: FDA-Public Use
  Company Number: CN-UCBSA-2020054837

PATIENT
  Age: 30 Year
  Sex: Female
  Weight: 52 kg

DRUGS (1)
  1. CIMZIA [Suspect]
     Active Substance: CERTOLIZUMAB PEGOL
     Indication: RHEUMATOID ARTHRITIS
     Dosage: 200 MILLIGRAM, EV 2 WEEKS(QOW)
     Dates: start: 20201212, end: 20210609

REACTIONS (4)
  - Therapy cessation [Unknown]
  - Premature rupture of membranes [Unknown]
  - Maternal exposure during pregnancy [Unknown]
  - Inability to afford medication [Unknown]

NARRATIVE: CASE EVENT DATE: 20201212
